FAERS Safety Report 22827776 (Version 3)
Quarter: 2023Q4

REPORT INFORMATION
  Report Type: Spontaneous
  Country: US (occurrence: US)
  Receive Date: 20230816
  Receipt Date: 20231117
  Transmission Date: 20240110
  Serious: No
  Sender: FDA-Public Use
  Company Number: US-PFIZER INC-202300272880

PATIENT
  Age: 10 Year
  Sex: Male
  Weight: 34.02 kg

DRUGS (1)
  1. GENOTROPIN [Suspect]
     Active Substance: SOMATROPIN
     Indication: Noonan syndrome
     Dosage: 1.2 MG, 1X/DAY
     Route: 030
     Dates: start: 2014

REACTIONS (5)
  - Device leakage [Unknown]
  - Device malfunction [Unknown]
  - Poor quality device used [Unknown]
  - Incorrect route of product administration [Unknown]
  - Off label use [Unknown]

NARRATIVE: CASE EVENT DATE: 20140101
